FAERS Safety Report 4361379-2 (Version None)
Quarter: 2004Q2

REPORT INFORMATION
  Report Type: 
  Country: None (occurrence: None)
  Receive Date: 20040517
  Receipt Date: 20040510
  Transmission Date: 20050107
  Serious: Yes (Hospitalization, Other)
  Sender: FDA-Public Use
  Company Number: 2004-01-1989

PATIENT
  Age: 27 Year
  Sex: Female
  Weight: 73.4827 kg

DRUGS (2)
  1. PEG-INTRON (PEGINTERFERON ALFA-2B) INJECTABLE POWDER [Suspect]
     Indication: HEPATITIS C
     Dosage: SUBCUTANEOUS
     Route: 058
     Dates: start: 20030918, end: 20040122
  2. REBETOL [Suspect]
     Indication: HEPATITIS C
     Dosage: 1000 MG QD ORAL
     Route: 048
     Dates: start: 20030918, end: 20040122

REACTIONS (5)
  - EYE PAIN [None]
  - EYE SWELLING [None]
  - MESENTERIC OCCLUSION [None]
  - PANCREATITIS NECROTISING [None]
  - PSEUDOCYST [None]
